FAERS Safety Report 17573767 (Version 1)
Quarter: 2020Q1

REPORT INFORMATION
  Report Type: Spontaneous
  Country: US (occurrence: US)
  Receive Date: 20200323
  Receipt Date: 20200323
  Transmission Date: 20200409
  Serious: No
  Sender: FDA-Public Use
  Company Number: US-BEH-2020114234

PATIENT
  Age: 58 Year
  Sex: Male

DRUGS (15)
  1. PANTOPRAZOLE [Concomitant]
     Active Substance: PANTOPRAZOLE
  2. GABAPENTIN. [Concomitant]
     Active Substance: GABAPENTIN
  3. LEVOTHYROXINE. [Concomitant]
     Active Substance: LEVOTHYROXINE
  4. CLARITIN [Concomitant]
     Active Substance: LORATADINE
  5. LORAZEPAM. [Concomitant]
     Active Substance: LORAZEPAM
  6. TAMSULOSIN [Concomitant]
     Active Substance: TAMSULOSIN
  7. ZOLOFT [Concomitant]
     Active Substance: SERTRALINE HYDROCHLORIDE
  8. OXCARBAZEPIN [Concomitant]
     Active Substance: OXCARBAZEPINE
  9. HIZENTRA [Suspect]
     Active Substance: HUMAN IMMUNOGLOBULIN G
     Indication: HYPOGAMMAGLOBULINAEMIA
     Dosage: 24 GRAM, QW
     Route: 058
     Dates: start: 20200121
  10. ASPIRIN. [Concomitant]
     Active Substance: ASPIRIN
  11. KEPPRA [Concomitant]
     Active Substance: LEVETIRACETAM
  12. METOPROLOL TARTRATE. [Concomitant]
     Active Substance: METOPROLOL TARTRATE
  13. AMOXICILLIN/CLAV POT [Concomitant]
  14. FINASTERIDE. [Concomitant]
     Active Substance: FINASTERIDE
  15. QUETIAPINE. [Concomitant]
     Active Substance: QUETIAPINE

REACTIONS (5)
  - Asthenia [Not Recovered/Not Resolved]
  - Product dose omission [Unknown]
  - Pain [Not Recovered/Not Resolved]
  - Somnolence [Not Recovered/Not Resolved]
  - No adverse event [Unknown]
